FAERS Safety Report 24375937 (Version 1)
Quarter: 2024Q3

REPORT INFORMATION
  Report Type: Other
  Country: US (occurrence: US)
  Receive Date: 20240928
  Receipt Date: 20240928
  Transmission Date: 20241017
  Serious: Yes (Other)
  Sender: Spectra Medical Devices
  Company Number: US-Spectra Medical Devices, LLC-2162182

PATIENT
  Age: 42 Year
  Sex: Female
  Weight: 56.7 kg

DRUGS (5)
  1. LIDOCAINE HYDROCHLORIDE [Suspect]
     Active Substance: LIDOCAINE HYDROCHLORIDE
     Indication: Local anaesthesia
  2. ATENOLOL [Concomitant]
     Active Substance: ATENOLOL
  3. FENTANYL [Concomitant]
     Active Substance: FENTANYL\FENTANYL CITRATE
  4. OXYGEN [Concomitant]
     Active Substance: OXYGEN
  5. TRAMADOL [Concomitant]
     Active Substance: TRAMADOL

REACTIONS (3)
  - Local anaesthetic systemic toxicity [Recovered/Resolved]
  - Medication error [Unknown]
  - Treatment noncompliance [Unknown]
